FAERS Safety Report 23879549 (Version 1)
Quarter: 2024Q2

REPORT INFORMATION
  Report Type: Spontaneous
  Country: US (occurrence: None)
  Receive Date: 20240520
  Receipt Date: 20240520
  Transmission Date: 20240717
  Serious: Yes (Other)
  Sender: FDA-Public Use
  Company Number: None

PATIENT
  Age: 85 Year
  Sex: Male
  Weight: 60 kg

DRUGS (1)
  1. LATANOPROST [Suspect]
     Active Substance: LATANOPROST
     Indication: Open angle glaucoma
     Dosage: 1 GTT DROP AT BEDTIME OPHTHALMIC
     Route: 047
     Dates: start: 20240401

REACTIONS (1)
  - Nightmare [None]

NARRATIVE: CASE EVENT DATE: 20240501
